FAERS Safety Report 7571122-1 (Version None)
Quarter: 2011Q2

REPORT INFORMATION
  Report Type: 
  Country: None (occurrence: None)
  Receive Date: 20110620
  Receipt Date: 20110601
  Transmission Date: 20111010
  Serious: Yes (Other)
  Sender: FDA-Public Use
  Company Number: GER/GER/11/0018589

PATIENT
  Age: 52 Year
  Sex: Male

DRUGS (2)
  1. CORTISONE ACETATE [Concomitant]
  2. ALENDRONATE SODIUM [Suspect]
     Indication: PRODUCT USED FOR UNKNOWN INDICATION
     Dates: start: 20050401, end: 20070701

REACTIONS (2)
  - ABSCESS [None]
  - OSTEONECROSIS OF JAW [None]
